FAERS Safety Report 9298577 (Version 1)
Quarter: 2013Q2

REPORT INFORMATION
  Report Type: Spontaneous
  Country: AU (occurrence: AU)
  Receive Date: 20130520
  Receipt Date: 20130520
  Transmission Date: 20140414
  Serious: Yes (Other)
  Sender: FDA-Public Use
  Company Number: AU-ROCHE-1224156

PATIENT
  Age: 56 Year
  Sex: Male

DRUGS (4)
  1. PEG-INTERFERON ALFA 2A [Suspect]
     Indication: HEPATITIS C
     Route: 065
     Dates: start: 200509
  2. RIBAVIRIN [Suspect]
     Indication: HEPATITIS C
     Route: 065
     Dates: start: 200509
  3. TRUVADA [Concomitant]
     Indication: HIV INFECTION
  4. KALETRA [Concomitant]
     Indication: HIV INFECTION

REACTIONS (3)
  - Fatigue [Unknown]
  - Treatment failure [Unknown]
  - Disease progression [Unknown]
